FAERS Safety Report 7055268-2 (Version None)
Quarter: 2010Q4

REPORT INFORMATION
  Report Type: 
  Country: None (occurrence: None)
  Receive Date: 20101021
  Receipt Date: 20101011
  Transmission Date: 20110411
  Serious: Yes (Hospitalization)
  Sender: FDA-Public Use
  Company Number: US-SANOFI-AVENTIS-2010SA062386

PATIENT
  Sex: Male

DRUGS (6)
  1. FUROSEMIDE [Suspect]
     Indication: CARDIOMYOPATHY
     Route: 065
  2. FUROSEMIDE [Suspect]
     Dosage: ON DAY 65 AND DAY 81
     Route: 048
  3. FUROSEMIDE [Suspect]
     Dosage: ON DAY 66 AND 76
     Route: 042
  4. FUROSEMIDE [Suspect]
     Dosage: DAY 82 TO 84
     Route: 065
  5. FUROSEMIDE [Suspect]
     Dosage: DAY 81
     Route: 042
  6. ENALAPRIL MALEATE [Concomitant]

REACTIONS (7)
  - INFECTION [None]
  - RASH PRURITIC [None]
  - RENAL FAILURE ACUTE [None]
  - STEVENS-JOHNSON SYNDROME [None]
  - THROMBOSIS [None]
  - TONGUE BLISTERING [None]
  - TONGUE DISCOLOURATION [None]
